FAERS Safety Report 4513452-3 (Version None)
Quarter: 2004Q4

REPORT INFORMATION
  Report Type: 
  Country: None (occurrence: None)
  Receive Date: 20041124
  Receipt Date: 20041109
  Transmission Date: 20050328
  Serious: Yes (Hospitalization)
  Sender: FDA-Public Use
  Company Number: D01200404649

PATIENT
  Age: 61 Year
  Sex: Male

DRUGS (9)
  1. CLOPIDOGREL TABLET 75 MG [Suspect]
     Indication: ANGIOPATHY
     Dosage: 75 MG QD
     Route: 048
     Dates: start: 20040908
  2. CLOPIDOGREL TABLET 75 MG [Suspect]
     Indication: PROPHYLAXIS
     Dosage: 75 MG QD
     Route: 048
     Dates: start: 20040908
  3. IRBESARTAN/PLACEBO TABLET 150 MG [Suspect]
     Indication: ANGIOPATHY
     Dosage: 150 MG/DAY FOR 2 WEEKS FOLLOWING BY 300 MG/DAY
     Route: 048
     Dates: start: 20040908
  4. IRBESARTAN/PLACEBO TABLET 150 MG [Suspect]
     Indication: PROPHYLAXIS
     Dosage: 150 MG/DAY FOR 2 WEEKS FOLLOWING BY 300 MG/DAY
     Route: 048
     Dates: start: 20040908
  5. ACETYLSALICYLIC ACID SRT [Concomitant]
  6. CAPTOPRIL [Concomitant]
  7. FUROSEMIDE [Concomitant]
  8. SPIRONOLACTONE [Concomitant]
  9. METOPROLOL [Concomitant]

REACTIONS (1)
  - OESOPHAGITIS [None]
